FAERS Safety Report 9204669 (Version 1)
Quarter: 2013Q2

REPORT INFORMATION
  Report Type: Spontaneous
  Country: US (occurrence: US)
  Receive Date: 20130402
  Receipt Date: 20130402
  Transmission Date: 20140414
  Serious: Yes (Congenital Anomaly, Other)
  Sender: FDA-Public Use
  Company Number: US-ABBOTT-13P-163-1069973-00

PATIENT
  Sex: Female

DRUGS (1)
  1. DEPAKOTE [Suspect]
     Indication: MATERNAL EXPOSURE TIMING UNSPECIFIED
     Route: 064

REACTIONS (6)
  - Respiratory arrest [Unknown]
  - Skull malformation [Unknown]
  - Dysmorphism [Unknown]
  - Foetal exposure during pregnancy [Unknown]
  - Dyspnoea [Unknown]
  - Feeding disorder neonatal [Unknown]
